FAERS Safety Report 5786366-9 (Version None)
Quarter: 2008Q2

REPORT INFORMATION
  Report Type: 
  Country: None (occurrence: None)
  Receive Date: 20080619
  Receipt Date: 20080605
  Transmission Date: 20081010
  Serious: Yes (Hospitalization)
  Sender: FDA-Public Use
  Company Number: TCI2008A02426

PATIENT
  Age: 47 Year
  Sex: Male

DRUGS (3)
  1. BASEN (VOGLIBOSE) [Suspect]
     Indication: DIABETES MELLITUS
     Dosage: 0.9 MG (0.3 MG, 3 IN 1 D) PER ORAL
     Route: 048
     Dates: start: 20080421
  2. ACTOS [Suspect]
     Dosage: 30 MG (30 MG, 1 IN 1 D) PER ORAL
     Route: 048
     Dates: start: 20080421
  3. GLUFAST (MITIGLINIDE CALCIUM HYDRATE) [Suspect]
     Dosage: 30 MG (10 MG, 3 IN 1 D) PER ORAL
     Route: 048
     Dates: start: 20080421

REACTIONS (1)
  - PANCREATITIS ACUTE [None]
